FAERS Safety Report 4440260-4 (Version None)
Quarter: 2004Q3

REPORT INFORMATION
  Report Type: 
  Country: None (occurrence: None)
  Receive Date: 20040903
  Receipt Date: 20040412
  Transmission Date: 20050211
  Serious: No
  Sender: FDA-Public Use
  Company Number: US-GLAXOSMITHKLINE-A0506813A

PATIENT
  Age: 63 Year
  Sex: Male

DRUGS (12)
  1. REQUIP [Suspect]
     Indication: RESTLESS LEGS SYNDROME
     Dosage: .25MG AT NIGHT
     Route: 048
     Dates: start: 20040409
  2. TETRACYCLINE [Concomitant]
  3. TRICOR [Concomitant]
  4. LOTREL [Concomitant]
  5. COMBIVENT [Concomitant]
  6. MOTRIN [Concomitant]
  7. ASPIRIN [Concomitant]
  8. GLUCOSAMINE/CHONDROITIN [Concomitant]
  9. VITAMIN B COMPLEX CAP [Concomitant]
  10. ZINC [Concomitant]
  11. CALCIUM [Concomitant]
  12. MAGNESIUM [Concomitant]

REACTIONS (4)
  - HYPERHIDROSIS [None]
  - HYPERVIGILANCE [None]
  - INSOMNIA [None]
  - THINKING ABNORMAL [None]
